FAERS Safety Report 11462801 (Version 1)
Quarter: 2015Q3

REPORT INFORMATION
  Report Type: Spontaneous
  Country: US (occurrence: US)
  Receive Date: 20150831
  Receipt Date: 20150831
  Transmission Date: 20151125
  Serious: No
  Sender: FDA-Public Use
  Company Number: US-ELI_LILLY_AND_COMPANY-US201101006053

PATIENT
  Age: 65 Year
  Sex: Female

DRUGS (2)
  1. CYMBALTA [Suspect]
     Active Substance: DULOXETINE HYDROCHLORIDE
     Indication: DEPRESSION
     Dosage: 30 MG, DAILY (1/D)
  2. ANALGESICS [Concomitant]
     Active Substance: UNSPECIFIED INGREDIENT
     Indication: BACK PAIN

REACTIONS (7)
  - Hypersomnia [Unknown]
  - Asthenia [Unknown]
  - Somnolence [Unknown]
  - Amnesia [Unknown]
  - Drug ineffective [Recovered/Resolved]
  - Aphasia [Unknown]
  - Fatigue [Unknown]
